FAERS Safety Report 5913972-0 (Version None)
Quarter: 2008Q3

REPORT INFORMATION
  Report Type: 
  Country: None (occurrence: None)
  Receive Date: 20080909
  Receipt Date: 20071015
  Transmission Date: 20090109
  Serious: Yes (Hospitalization, Other)
  Sender: FDA-Public Use
  Company Number: 163-20785-07091185 (0)

PATIENT
  Age: 70 Year
  Sex: Male

DRUGS (4)
  1. THALOMID [Suspect]
     Indication: MULTIPLE MYELOMA
     Dosage: DAILY, ORAL, 100 MG, 2 IN 1 D, ORAL, 150 MG, 3 IN 1 D, ORAL
     Route: 048
     Dates: start: 20040401, end: 20040501
  2. THALOMID [Suspect]
     Indication: MULTIPLE MYELOMA
     Dosage: DAILY, ORAL, 100 MG, 2 IN 1 D, ORAL, 150 MG, 3 IN 1 D, ORAL
     Route: 048
     Dates: start: 20040501, end: 20040601
  3. THALOMID [Suspect]
     Indication: MULTIPLE MYELOMA
     Dosage: DAILY, ORAL, 100 MG, 2 IN 1 D, ORAL, 150 MG, 3 IN 1 D, ORAL
     Route: 048
     Dates: start: 20040601, end: 20060501
  4. VELCADE [Suspect]
     Indication: MULTIPLE MYELOMA

REACTIONS (5)
  - ASTHENIA [None]
  - ATAXIA [None]
  - COORDINATION ABNORMAL [None]
  - DISEASE PROGRESSION [None]
  - NEUROPATHY PERIPHERAL [None]
